FAERS Safety Report 22184751 (Version 1)
Quarter: 2023Q2

REPORT INFORMATION
  Report Type: Spontaneous
  Country: US (occurrence: US)
  Receive Date: 20230407
  Receipt Date: 20230407
  Transmission Date: 20230722
  Serious: No
  Sender: FDA-Public Use
  Company Number: US-Melinta Therapeutics, LLC-US-MLNT-23-00006

PATIENT
  Age: 48 Year
  Sex: Male

DRUGS (5)
  1. KIMYRSA [Suspect]
     Active Substance: ORITAVANCIN DIPHOSPHATE
     Indication: Osteomyelitis acute
     Dosage: 1200 MG, THE PATIENT COMPLETED THE 250 CC INFUSION WITHIN 2 HOURS.
     Route: 041
     Dates: start: 20221208, end: 20221208
  2. KIMYRSA [Suspect]
     Active Substance: ORITAVANCIN DIPHOSPHATE
     Dosage: 1200 MG, THE INFUSION WAS STARTED AT A SLOWER RATE AND GRADUALLY INCREASED.
     Route: 041
     Dates: start: 20221221, end: 20221221
  3. BENADRYL [Concomitant]
     Active Substance: DIPHENHYDRAMINE HYDROCHLORIDE
     Indication: Premedication
     Dosage: THE PATIENT WAS PREMEDICATED WITH 25 MG BENADRYL WITHIN 30 MINS PRIOR TO INFUSION.
     Route: 065
     Dates: start: 20221208, end: 20221208
  4. BENADRYL [Concomitant]
     Active Substance: DIPHENHYDRAMINE HYDROCHLORIDE
     Dosage: THE PATIENT RECEIVED 25 MG OF BENADRYL AFTER EVENTS APPEARED.
     Route: 065
     Dates: start: 20221208, end: 20221208
  5. BENADRYL [Concomitant]
     Active Substance: DIPHENHYDRAMINE HYDROCHLORIDE
     Dosage: HE WAS PREMEDICATED WITH 50 MG BENADRYL PRIOR TO ARRIVAL AT INFUSION CENTER.
     Route: 065
     Dates: start: 20221221, end: 20221221

REACTIONS (6)
  - Hyperhidrosis [Recovered/Resolved]
  - Dizziness [Recovered/Resolved]
  - Nausea [Recovered/Resolved]
  - Infusion related reaction [Recovered/Resolved]
  - Off label use [Recovered/Resolved]
  - Multiple use of single-use product [Recovered/Resolved]

NARRATIVE: CASE EVENT DATE: 20221208
